FAERS Safety Report 24737795 (Version 1)
Quarter: 2024Q4

REPORT INFORMATION
  Report Type: Spontaneous
  Country: BR (occurrence: BR)
  Receive Date: 20241216
  Receipt Date: 20241216
  Transmission Date: 20250114
  Serious: Yes (Other)
  Sender: MYLAN
  Company Number: BR-MYLANLABS-2024M1112055

PATIENT
  Age: 25 Year
  Sex: Female

DRUGS (3)
  1. OLANZAPINE [Suspect]
     Active Substance: OLANZAPINE
     Indication: Psychotic disorder
     Dosage: 10 MILLIGRAM, QD
     Route: 065
  2. OLANZAPINE [Suspect]
     Active Substance: OLANZAPINE
     Dosage: 5 MILLIGRAM, QD
     Route: 065
  3. FLUVOXAMINE [Suspect]
     Active Substance: FLUVOXAMINE
     Indication: Psychotic disorder
     Dosage: 50 MILLIGRAM, QD
     Route: 065

REACTIONS (2)
  - Cognitive disorder [Unknown]
  - Memory impairment [Unknown]
